FAERS Safety Report 4528597-1 (Version None)
Quarter: 2004Q4

REPORT INFORMATION
  Report Type: 
  Country: None (occurrence: None)
  Receive Date: 20041216
  Receipt Date: 20041209
  Transmission Date: 20050328
  Serious: Yes (Other)
  Sender: FDA-Public Use
  Company Number: JP-BRISTOL-MYERS SQUIBB COMPANY-12795274

PATIENT
  Age: 49 Year
  Sex: Male

DRUGS (8)
  1. IFOMIDE [Suspect]
     Indication: LYMPHOMA
     Route: 041
     Dates: start: 20041129, end: 20041202
  2. UROMITEXAN [Concomitant]
  3. ETOPOSIDE [Concomitant]
  4. GRANISETRON HCL [Concomitant]
  5. CEFTRIAXONE SODIUM [Concomitant]
  6. ALLOPURINOL [Concomitant]
  7. URSODEOXYCHOLIC ACID [Concomitant]
  8. FLUCONAZOLE [Concomitant]

REACTIONS (1)
  - ENCEPHALOPATHY [None]
